FAERS Safety Report 21516321 (Version 8)
Quarter: 2023Q1

REPORT INFORMATION
  Report Type: Report from Study
  Country: BR (occurrence: BR)
  Receive Date: 20221027
  Receipt Date: 20230214
  Transmission Date: 20230417
  Serious: Yes (Hospitalization)
  Sender: FDA-Public Use
  Company Number: BR-JNJFOC-20221047509

PATIENT
  Age: 67 Year
  Sex: Male
  Weight: 80 kg

DRUGS (13)
  1. AMIVANTAMAB [Suspect]
     Active Substance: AMIVANTAMAB
     Indication: Non-small cell lung cancer metastatic
     Dosage: MOST RECENT DOSE ON 03-OCT-2022
     Route: 042
     Dates: start: 20220523
  2. PEMETREXED [Concomitant]
     Active Substance: PEMETREXED
     Indication: Non-small cell lung cancer metastatic
     Dosage: MOST RECENT DOSE ON 03-OCT-2022
     Route: 042
     Dates: start: 20220523
  3. CARBOPLATIN [Concomitant]
     Active Substance: CARBOPLATIN
     Indication: Non-small cell lung cancer metastatic
     Route: 042
     Dates: start: 20220523, end: 20220803
  4. ENALAPRIL [Concomitant]
     Active Substance: ENALAPRIL
     Indication: Hypertension
     Route: 048
     Dates: start: 20220101
  5. OMEPRAZOLE [Concomitant]
     Active Substance: OMEPRAZOLE
     Indication: Prophylaxis
     Route: 048
     Dates: start: 20220510
  6. ENOXAPARIN [Concomitant]
     Active Substance: ENOXAPARIN
     Indication: Pulmonary embolism
     Route: 058
     Dates: start: 20220510
  7. BEPANTOL [Concomitant]
     Indication: Rash
     Route: 061
     Dates: start: 20220617
  8. BEPANTOL [Concomitant]
     Indication: Stomatitis
  9. CERAVE HEALING [Concomitant]
     Active Substance: PETROLATUM
     Indication: Rash
     Route: 061
     Dates: start: 20220617
  10. ADINOS [Concomitant]
     Indication: Rash
     Route: 061
     Dates: start: 20220617
  11. TAMSULOSIN [Concomitant]
     Active Substance: TAMSULOSIN
     Indication: Haematuria
     Route: 048
     Dates: start: 20220701
  12. MINERAL OIL [Concomitant]
     Active Substance: MINERAL OIL
     Indication: Constipation
     Route: 048
     Dates: start: 20220804
  13. RIVAROXABAN [Concomitant]
     Active Substance: RIVAROXABAN
     Indication: Thrombocytopenia
     Route: 048
     Dates: start: 20220824, end: 20221020

REACTIONS (1)
  - Deep vein thrombosis [Recovered/Resolved]

NARRATIVE: CASE EVENT DATE: 20221021
